FAERS Safety Report 19083172 (Version 2)
Quarter: 2021Q2

REPORT INFORMATION
  Report Type: Spontaneous
  Country: TH (occurrence: TH)
  Receive Date: 20210401
  Receipt Date: 20210401
  Transmission Date: 20210717
  Serious: Yes (Other)
  Sender: FDA-Public Use
  Company Number: TH-PFIZER INC-2021315894

PATIENT
  Age: 58 Year
  Sex: Female

DRUGS (1)
  1. ZOLOFT [Suspect]
     Active Substance: SERTRALINE HYDROCHLORIDE
     Dosage: 100 MG, ONCE DAILY (OD)
     Route: 048
     Dates: end: 202103

REACTIONS (2)
  - Neuropathy peripheral [Unknown]
  - Herpes zoster [Unknown]

NARRATIVE: CASE EVENT DATE: 202103
